FAERS Safety Report 13482733 (Version 5)
Quarter: 2018Q1

REPORT INFORMATION
  Report Type: Report from Study
  Country: US (occurrence: US)
  Receive Date: 20170424
  Receipt Date: 20180125
  Transmission Date: 20180508
  Serious: No
  Sender: FDA-Public Use
  Company Number: US-AMGEN-USASL2017043788

PATIENT
  Age: 57 Year
  Sex: Female

DRUGS (2)
  1. CRESTOR [Concomitant]
     Active Substance: ROSUVASTATIN CALCIUM
     Dosage: UNK
     Dates: start: 2016
  2. REPATHA [Suspect]
     Active Substance: EVOLOCUMAB
     Indication: BLOOD CHOLESTEROL INCREASED
     Dosage: 140 MG, Q2WK
     Route: 065
     Dates: start: 201511

REACTIONS (3)
  - Drug dose omission [Unknown]
  - Hypoaesthesia oral [Not Recovered/Not Resolved]
  - Hypersensitivity [Unknown]

NARRATIVE: CASE EVENT DATE: 201610
